FAERS Safety Report 18258247 (Version 7)
Quarter: 2021Q1

REPORT INFORMATION
  Report Type: Report from Study
  Country: US (occurrence: US)
  Receive Date: 20200911
  Receipt Date: 20210326
  Transmission Date: 20210419
  Serious: Yes (Other)
  Sender: FDA-Public Use
  Company Number: NVSC2020US249326

PATIENT
  Age: 74 Year
  Sex: Female

DRUGS (4)
  1. ENTRESTO [Suspect]
     Active Substance: SACUBITRIL\VALSARTAN
     Dosage: 1 DF, BID(24/26MG)
     Route: 048
     Dates: start: 2020
  2. ENTRESTO [Suspect]
     Active Substance: SACUBITRIL\VALSARTAN
     Dosage: UNK UNK, BID (1/2 TABLET IN AM AND 1 TAB PM)
     Route: 048
     Dates: start: 2020
  3. ENTRESTO [Suspect]
     Active Substance: SACUBITRIL\VALSARTAN
     Dosage: 0.5 DF, BID(24/26MG)
     Route: 048
     Dates: start: 2020
  4. ENTRESTO [Suspect]
     Active Substance: SACUBITRIL\VALSARTAN
     Indication: CARDIAC FAILURE
     Dosage: 0.5 DF, BID(24/26MG)
     Route: 048
     Dates: start: 20200902

REACTIONS (11)
  - Stress [Unknown]
  - Ejection fraction decreased [Not Recovered/Not Resolved]
  - Ventricular fibrillation [Not Recovered/Not Resolved]
  - Wrong technique in product usage process [Unknown]
  - Product dose omission issue [Unknown]
  - Toothache [Unknown]
  - Weight decreased [Recovering/Resolving]
  - Fatigue [Unknown]
  - Incorrect dose administered [Unknown]
  - Product prescribing error [Unknown]
  - Hypotension [Unknown]

NARRATIVE: CASE EVENT DATE: 202009
